FAERS Safety Report 20839874 (Version 1)
Quarter: 2022Q2

REPORT INFORMATION
  Report Type: Report from Study
  Country: CN (occurrence: CN)
  Receive Date: 20220517
  Receipt Date: 20220517
  Transmission Date: 20220720
  Serious: Yes (Life-Threatening, Hospitalization)
  Sender: FDA-Public Use
  Company Number: CN-ELI_LILLY_AND_COMPANY-CN202205002637

PATIENT
  Age: 73 Year
  Sex: Male

DRUGS (16)
  1. GEMCITABINE HYDROCHLORIDE [Suspect]
     Active Substance: GEMCITABINE HYDROCHLORIDE
     Indication: Non-small cell lung cancer
     Dosage: 1800 MG, CYCLICAL
     Route: 042
     Dates: start: 20180521, end: 20180530
  2. GEMCITABINE HYDROCHLORIDE [Suspect]
     Active Substance: GEMCITABINE HYDROCHLORIDE
     Dosage: 1400 MG, CYCLICAL
     Route: 042
     Dates: start: 20180621, end: 20180808
  3. CISPLATIN [Concomitant]
     Active Substance: CISPLATIN
     Indication: Non-small cell lung cancer
     Dosage: 60 MG, SINGLE
     Route: 042
     Dates: start: 20180521, end: 20180522
  4. CISPLATIN [Concomitant]
     Active Substance: CISPLATIN
     Dosage: 50 MG, CYCLICAL
     Route: 042
     Dates: start: 20180621, end: 20180809
  5. NIFEDIPINE [Concomitant]
     Active Substance: NIFEDIPINE
     Indication: Blood pressure fluctuation
     Dosage: UNK, UNKNOWN
     Route: 065
  6. BUDESONIDE [Concomitant]
     Active Substance: BUDESONIDE
     Indication: Productive cough
     Dosage: UNK, UNKNOWN
     Route: 065
     Dates: start: 20180517
  7. IPRATROPIUM BROMIDE [Concomitant]
     Active Substance: IPRATROPIUM BROMIDE
     Indication: Productive cough
     Dosage: UNK, UNKNOWN
     Route: 065
     Dates: start: 20180517
  8. FUROSEMIDE [Concomitant]
     Active Substance: FUROSEMIDE
     Indication: Prophylaxis
     Dosage: UNK, UNKNOWN
     Route: 065
     Dates: start: 20180519
  9. SPIRONOLACTONE [Concomitant]
     Active Substance: SPIRONOLACTONE
     Indication: Oedema
     Dosage: UNK, UNKNOWN
     Route: 065
     Dates: start: 20180518
  10. METOCLOPRAMIDE HYDROCHLORIDE [Concomitant]
     Active Substance: METOCLOPRAMIDE HYDROCHLORIDE
     Indication: Prophylaxis of nausea and vomiting
     Dosage: UNK, UNKNOWN
     Route: 065
     Dates: start: 20180521
  11. TROPISETRON [Concomitant]
     Active Substance: TROPISETRON
     Indication: Prophylaxis
     Dosage: UNK, UNKNOWN
     Route: 065
     Dates: start: 20180521
  12. METHYLPREDNISOLONE SODIUM SUCCINATE [Concomitant]
     Active Substance: METHYLPREDNISOLONE SODIUM SUCCINATE
     Indication: Oncologic complication
     Dosage: UNK, UNKNOWN
     Route: 065
     Dates: start: 20180521
  13. LANSOPRAZOLE [Concomitant]
     Active Substance: LANSOPRAZOLE
     Indication: Prophylaxis of nausea and vomiting
     Dosage: UNK, UNKNOWN
     Route: 065
     Dates: start: 20180521
  14. GLUTATHIONE [Concomitant]
     Active Substance: GLUTATHIONE
     Indication: Liver disorder
     Dosage: UNK, UNKNOWN
     Route: 065
     Dates: start: 20180521
  15. OLANZAPINE [Concomitant]
     Active Substance: OLANZAPINE
     Indication: Sleep disorder
     Dosage: UNK, UNKNOWN
     Route: 065
     Dates: start: 20180521
  16. FUROSEMIDE SODIUM [Concomitant]
     Active Substance: FUROSEMIDE SODIUM
     Indication: Oedema
     Dosage: UNK, UNKNOWN
     Route: 065
     Dates: start: 20180521

REACTIONS (2)
  - Thrombocytopenia [Recovered/Resolved]
  - Neutrophil count decreased [Recovered/Resolved]

NARRATIVE: CASE EVENT DATE: 20180531
